FAERS Safety Report 14413749 (Version 1)
Quarter: 2018Q1

REPORT INFORMATION
  Report Type: Spontaneous
  Country: PH (occurrence: PH)
  Receive Date: 20180119
  Receipt Date: 20180119
  Transmission Date: 20180509
  Serious: Yes (Other)
  Sender: FDA-Public Use
  Company Number: PH-009507513-1801PHL005272

PATIENT
  Age: 77 Year
  Sex: Male

DRUGS (1)
  1. KEYTRUDA [Suspect]
     Active Substance: PEMBROLIZUMAB
     Indication: NON-SMALL CELL LUNG CANCER STAGE IV
     Dosage: UNK

REACTIONS (12)
  - Renal cyst [Unknown]
  - Bone disorder [Unknown]
  - Cerebral atrophy [Unknown]
  - White matter lesion [Unknown]
  - Nasal septum deviation [Unknown]
  - Intervertebral disc displacement [Unknown]
  - Carotid arteriosclerosis [Unknown]
  - Tumour necrosis [Unknown]
  - Thyroid mass [Unknown]
  - Malignant neoplasm progression [Unknown]
  - Aortic aneurysm [Unknown]
  - Prostatomegaly [Unknown]

NARRATIVE: CASE EVENT DATE: 20180110
